FAERS Safety Report 24029798 (Version 1)
Quarter: 2024Q2

REPORT INFORMATION
  Report Type: Spontaneous
  Country: US (occurrence: US)
  Receive Date: 20240628
  Receipt Date: 20240628
  Transmission Date: 20240716
  Serious: Yes (Life-Threatening, Hospitalization)
  Sender: FDA-Public Use
  Company Number: US-MLMSERVICE-20240613-PI097713-00144-1-00

PATIENT
  Age: 49 Year
  Sex: Male

DRUGS (2)
  1. FENOFIBRATE [Interacting]
     Active Substance: FENOFIBRATE
     Indication: Product used for unknown indication
     Route: 065
  2. TACROLIMUS [Concomitant]
     Active Substance: TACROLIMUS
     Indication: Product used for unknown indication

REACTIONS (4)
  - Hepatic failure [Unknown]
  - Drug interaction [Unknown]
  - Renal failure [Unknown]
  - Rhabdomyolysis [Unknown]
